FAERS Safety Report 8125546-4 (Version None)
Quarter: 2012Q1

REPORT INFORMATION
  Report Type: 
  Country: None (occurrence: None)
  Receive Date: 20120209
  Receipt Date: 20120206
  Transmission Date: 20120608
  Serious: Yes (Hospitalization, Other)
  Sender: FDA-Public Use
  Company Number: US-PFIZER INC-2012032316

PATIENT
  Sex: Female
  Weight: 99.8 kg

DRUGS (2)
  1. LYRICA [Suspect]
     Indication: NEUROPATHY PERIPHERAL
     Dosage: 150 MG, 4X/DAY
     Route: 048
     Dates: start: 20110101
  2. TRICOR [Concomitant]
     Dosage: UNK

REACTIONS (2)
  - SPEECH DISORDER [None]
  - CEREBROVASCULAR ACCIDENT [None]
